FAERS Safety Report 9491376 (Version 2)
Quarter: 2013Q3

REPORT INFORMATION
  Report Type: Report from Study
  Country: US (occurrence: US)
  Receive Date: 20130830
  Receipt Date: 20130830
  Transmission Date: 20140515
  Serious: Yes (Other)
  Sender: FDA-Public Use
  Company Number: PHHO2010US17039

PATIENT
  Age: 69 Year
  Sex: Male

DRUGS (30)
  1. ALISKIREN [Suspect]
     Indication: CARDIOVASCULAR DISORDER
     Route: 048
     Dates: end: 20090930
  2. MICARDIS [Concomitant]
  3. FERROUS SULFATE [Concomitant]
  4. LIPITOR [Concomitant]
  5. ASA [Concomitant]
  6. TORSEMIDE [Concomitant]
  7. LEVOTHYROXINE [Concomitant]
  8. CADUET [Concomitant]
  9. ALLOPURINOL [Concomitant]
  10. ERGOCALCIFEROL [Concomitant]
  11. ALPHAGAN [Concomitant]
  12. COSOPT [Concomitant]
  13. XALATAN [Concomitant]
  14. INSPRA [Concomitant]
  15. LANTUS [Concomitant]
  16. PHOSLO [Concomitant]
  17. SIMVASTATIN [Concomitant]
  18. FUROSEMIDE [Concomitant]
  19. AMLODIPINE BESYLATE [Concomitant]
  20. VIAGRA [Concomitant]
  21. METOPROLOL [Concomitant]
  22. NITROPASTE [Concomitant]
  23. LOVENOX [Concomitant]
  24. LOPRESOR [Concomitant]
  25. LACTULOSE [Concomitant]
  26. NORVASC [Concomitant]
  27. COZAAR [Concomitant]
  28. HYDRALAZINE [Concomitant]
  29. ZYLOPRIM [Concomitant]
  30. LASIX [Concomitant]

REACTIONS (11)
  - Cardiomegaly [Unknown]
  - Aortic dilatation [Unknown]
  - Left ventricular hypertrophy [Unknown]
  - Tricuspid valve incompetence [Unknown]
  - Pulmonary hypertension [Unknown]
  - Microcytic anaemia [Unknown]
  - Hiatus hernia [Unknown]
  - Impaired gastric emptying [Unknown]
  - Haemorrhoids [Unknown]
  - Large intestine polyp [Unknown]
  - Haematochezia [Unknown]
